FAERS Safety Report 8499053-3 (Version None)
Quarter: 2012Q3

REPORT INFORMATION
  Report Type: 
  Country: None (occurrence: None)
  Receive Date: 20120710
  Receipt Date: 20120628
  Transmission Date: 20120928
  Serious: Yes (Hospitalization)
  Sender: FDA-Public Use
  Company Number: JP-MSD-2012SP033843

PATIENT

DRUGS (13)
  1. PEGINTERFERON ALFA-2B [Suspect]
     Dosage: 0.7 A?G/KG, QW
     Route: 058
     Dates: start: 20120419, end: 20120425
  2. REBETOL [Suspect]
     Dosage: 200 MG, QD
     Route: 048
     Dates: start: 20120426, end: 20120531
  3. ANTIVIRAL (UNSPECIFIED) [Suspect]
     Dosage: UNK UNK, UNKNOWN
     Route: 048
     Dates: end: 20120531
  4. ANTIVIRAL (UNSPECIFIED) [Suspect]
     Dosage: 1500 MG, QD
     Route: 048
     Dates: start: 20120427, end: 20120510
  5. BETNOVAL G [Concomitant]
     Indication: SEBORRHOEIC DERMATITIS
     Dosage: UPDATE(28JUN2012) OTHER PURPOSES : ECZEMA
     Route: 061
  6. PREDNISOLONE [Concomitant]
     Dosage: UPDATE(28JUN2012) FOR FIVE DAYS
     Dates: start: 20120514
  7. ALLOPURINOL [Concomitant]
     Indication: PRODUCT USED FOR UNKNOWN INDICATION
     Dosage: UNK UNK, UNKNOWN
     Route: 065
     Dates: start: 20120419
  8. ALMETA [Concomitant]
     Indication: SEBORRHOEIC DERMATITIS
     Dosage: UPDATE(28JUN2012) OTHER PURPOSES : ECZEMA
     Route: 061
     Dates: start: 20120419
  9. PEGINTERFERON ALFA-2B [Suspect]
     Dosage: 1.5 A?G/KG, QW
     Route: 058
     Dates: start: 20120426, end: 20120531
  10. REBETOL [Suspect]
     Indication: HEPATITIS C
     Dosage: 400 MG, QD
     Route: 048
     Dates: start: 20120412, end: 20120425
  11. ANTIVIRAL (UNSPECIFIED) [Suspect]
     Indication: HEPATITIS C
     Dosage: 2250 MG, QD
     Route: 048
     Dates: start: 20120412, end: 20120426
  12. AMINO ACIDS (UNSPECIFIED) [Concomitant]
     Indication: HEPATITIS C
     Dosage: UPDATE(28JUN2012)
     Route: 042
     Dates: start: 20120421, end: 20120507
  13. PEGINTERFERON ALFA-2B [Suspect]
     Indication: HEPATITIS C
     Dosage: 1.5 A?G/KG, QW
     Route: 058
     Dates: start: 20120412, end: 20120418

REACTIONS (1)
  - HAEMOGLOBIN DECREASED [None]
